FAERS Safety Report 12736222 (Version 1)
Quarter: 2016Q3

REPORT INFORMATION
  Report Type: Report from Study
  Country: BR (occurrence: BR)
  Receive Date: 20160912
  Receipt Date: 20160912
  Transmission Date: 20161109
  Serious: Yes (Other)
  Sender: FDA-Public Use
  Company Number: ALCN2016BR006161

PATIENT
  Sex: Male
  Weight: 85 kg

DRUGS (1)
  1. TRAVATAN Z [Suspect]
     Active Substance: TRAVOPROST
     Indication: GLAUCOMA
     Dosage: 1 GTT, QD
     Route: 047

REACTIONS (8)
  - Asthenia [Unknown]
  - Metastases to bone [Unknown]
  - Balance disorder [Unknown]
  - Pain [Unknown]
  - Prostate cancer [Unknown]
  - Pain in extremity [Unknown]
  - General physical health deterioration [Unknown]
  - Sciatica [Unknown]
